FAERS Safety Report 9914308 (Version 2)
Quarter: 2014Q2

REPORT INFORMATION
  Report Type: Spontaneous
  Country: JP (occurrence: None)
  Receive Date: 20140218
  Receipt Date: 20140403
  Transmission Date: 20141212
  Serious: Yes (Other)
  Sender: FDA-Public Use
  Company Number: JP-20140007

PATIENT
  Age: 37 Year
  Sex: Female

DRUGS (1)
  1. LIPIODOL ULTRA FLUIDE [Suspect]
     Indication: HYSTEROSALPINGOGRAM
     Route: 067

REACTIONS (2)
  - Perihepatitis [None]
  - Medication residue present [None]
